FAERS Safety Report 7498594-5 (Version None)
Quarter: 2011Q2

REPORT INFORMATION
  Report Type: 
  Country: None (occurrence: None)
  Receive Date: 20110524
  Receipt Date: 20110425
  Transmission Date: 20111010
  Serious: Yes (Other)
  Sender: FDA-Public Use
  Company Number: US-BAYER-201039041NA

PATIENT
  Age: 52 Year
  Sex: Female
  Weight: 77.098 kg

DRUGS (13)
  1. VITAMIN E [Concomitant]
     Indication: PREMENSTRUAL SYNDROME
  2. VITAMIN B [Concomitant]
  3. PIROXICAM [Concomitant]
     Dosage: 10 MG, UNK
  4. ALLERX [CHLORPHENAM MAL,HYOSCINE METHONITR,PSEUDOEPH HCL] [Concomitant]
  5. YAZ [Suspect]
     Indication: PREMENSTRUAL SYNDROME
     Dosage: UNK UNK, QD
     Route: 048
     Dates: start: 20060601, end: 20100601
  6. GLUCOSAMINE W/CHONDROITIN SULFATE [Concomitant]
  7. FLAXSEED OIL [Concomitant]
     Indication: PREMENSTRUAL SYNDROME
  8. LORTAB [Concomitant]
     Indication: PREMENSTRUAL SYNDROME
  9. FELDENE [Concomitant]
  10. HYDROCODONE BITARTRATE AND ACETAMINOPHEN [Concomitant]
     Dosage: 5 MG, UNK
  11. EVENING PRIMROSE OIL [Concomitant]
     Indication: PREMENSTRUAL SYNDROME
  12. GREEN TEA CAPSULE [Concomitant]
  13. PROMETHAZINE [Concomitant]
     Dosage: 25 MG, UNK

REACTIONS (4)
  - CHOLECYSTITIS [None]
  - BILIARY DYSKINESIA [None]
  - GALLBLADDER NON-FUNCTIONING [None]
  - GALLBLADDER DISORDER [None]
